FAERS Safety Report 13109723 (Version 30)
Quarter: 2025Q3

REPORT INFORMATION
  Report Type: Spontaneous
  Country: US (occurrence: US)
  Receive Date: 20170112
  Receipt Date: 20250911
  Transmission Date: 20251021
  Serious: Yes (Hospitalization, Disabling, Other)
  Sender: PFIZER
  Company Number: US-PFIZER INC-2016491928

PATIENT
  Age: 43 Year
  Sex: Female
  Weight: 84 kg

DRUGS (9)
  1. XELJANZ [Suspect]
     Active Substance: TOFACITINIB CITRATE
     Indication: Rheumatoid arthritis
     Dosage: 5 MG, 2X/DAY (TAKE 1 TABLET TWICE A DAY AS DIRECT)
     Route: 048
     Dates: start: 20160807
  2. XELJANZ [Suspect]
     Active Substance: TOFACITINIB CITRATE
     Indication: Alopecia areata
     Dosage: 5 MG, 4X/DAY
     Route: 048
  3. XELJANZ [Suspect]
     Active Substance: TOFACITINIB CITRATE
     Indication: Alopecia
     Dosage: 10 MG PO(PER ORAL) BID
     Route: 048
  4. XELJANZ [Suspect]
     Active Substance: TOFACITINIB CITRATE
     Dosage: 10 MILLIGRAMS, ONCE A DAY
  5. XELJANZ [Suspect]
     Active Substance: TOFACITINIB CITRATE
  6. BIOTIN [Concomitant]
     Active Substance: BIOTIN
     Indication: Alopecia
     Dosage: UNK, DAILY (4-6 TABLETS, DAILY (TAKING IT MIDDAY))
     Dates: start: 201407
  7. HERBALS\SAW PALMETTO [Concomitant]
     Active Substance: HERBALS\SAW PALMETTO
     Indication: Alopecia
     Dosage: UNK, 1X/DAY (2-3 CAPSULES, (ONCE A DAY))
     Route: 048
     Dates: start: 201407
  8. SPIRONOLACTONE [Concomitant]
     Active Substance: SPIRONOLACTONE
     Indication: Swelling
     Dosage: 50 MG, 1X/DAY
     Route: 048
     Dates: start: 201409
  9. OXYCODONE [Concomitant]
     Active Substance: OXYCODONE

REACTIONS (19)
  - Dizziness [Unknown]
  - Speech disorder [Recovered/Resolved]
  - Loss of personal independence in daily activities [Unknown]
  - Gastric ulcer [Unknown]
  - Oesophageal ulcer [Unknown]
  - Off label use [Unknown]
  - Laryngitis [Not Recovered/Not Resolved]
  - Disease recurrence [Not Recovered/Not Resolved]
  - Malaise [Not Recovered/Not Resolved]
  - Lung disorder [Unknown]
  - Nasopharyngitis [Recovering/Resolving]
  - Drug hypersensitivity [Unknown]
  - Food poisoning [Not Recovered/Not Resolved]
  - Oropharyngeal pain [Unknown]
  - Pharyngitis streptococcal [Unknown]
  - Urticaria [Not Recovered/Not Resolved]
  - Dizziness [Unknown]
  - Oesophagitis [Unknown]
  - Illness [Unknown]
